FAERS Safety Report 23718341 (Version 1)
Quarter: 2024Q2

REPORT INFORMATION
  Report Type: Spontaneous
  Country: FR (occurrence: FR)
  Receive Date: 20240408
  Receipt Date: 20240408
  Transmission Date: 20240715
  Serious: Yes (Hospitalization)
  Sender: FDA-Public Use
  Company Number: None

PATIENT

DRUGS (2)
  1. ONCASPAR [Suspect]
     Active Substance: PEGASPARGASE
     Indication: Acute lymphocytic leukaemia
     Dosage: 87.57 IU
     Route: 042
     Dates: start: 20240305, end: 20240305
  2. ERWINASE [Suspect]
     Active Substance: ASPARAGINASE ERWINIA CHRYSANTHEMI
     Indication: Acute lymphocytic leukaemia
     Dosage: 31600 IU, BID
     Route: 042
     Dates: start: 20240306, end: 20240314

REACTIONS (6)
  - Confusional state [Recovered/Resolved]
  - Vision blurred [Recovered/Resolved]
  - Hyperammonaemia [Recovered/Resolved]
  - Dyspnoea [Recovered/Resolved]
  - Facial paresis [Recovered/Resolved]
  - Aphasia [Recovered/Resolved]

NARRATIVE: CASE EVENT DATE: 20240307
